FAERS Safety Report 9632539 (Version 1)
Quarter: 2013Q4

REPORT INFORMATION
  Report Type: Spontaneous
  Country: GB (occurrence: GB)
  Receive Date: 20131018
  Receipt Date: 20131018
  Transmission Date: 20140711
  Serious: Yes (Hospitalization)
  Sender: FDA-Public Use
  Company Number: GB-GLAXOSMITHKLINE-B0919006A

PATIENT
  Sex: 0

DRUGS (2)
  1. NIQUITIN [Suspect]
     Indication: PRODUCT USED FOR UNKNOWN INDICATION
     Dosage: 25MG PER DAY
     Route: 062
  2. INHALER [Concomitant]

REACTIONS (9)
  - Hospitalisation [Unknown]
  - Increased appetite [Unknown]
  - Pulmonary function test decreased [Unknown]
  - Frustration [Unknown]
  - Stress [Unknown]
  - Chronic obstructive pulmonary disease [Unknown]
  - Weight increased [Unknown]
  - Infection [Unknown]
  - Nicotine dependence [Unknown]
